FAERS Safety Report 8307433-1 (Version None)
Quarter: 2012Q2

REPORT INFORMATION
  Report Type: 
  Country: None (occurrence: None)
  Receive Date: 20120424
  Receipt Date: 20120416
  Transmission Date: 20120825
  Serious: Yes (Death)
  Sender: FDA-Public Use
  Company Number: PHEH2012US006624

PATIENT
  Sex: Male
  Weight: 113 kg

DRUGS (16)
  1. ASCORBIC ACID [Concomitant]
     Dosage: UNK UKN, UNK
     Route: 048
  2. VALIUM [Concomitant]
     Dosage: 1 DF, PRN
     Route: 048
  3. HYTONE [Concomitant]
     Dosage: UNK UKN, UNK
     Route: 061
  4. ZOCOR [Concomitant]
     Dosage: 20 MG, QHS
     Route: 048
  5. CAPSAICIN [Concomitant]
     Dosage: UNK UKN, UNK
     Route: 061
  6. FLEXERIL [Concomitant]
     Dosage: 1 DF, PRN
     Route: 048
  7. COLACE [Concomitant]
     Dosage: 1 DF, BID
     Route: 048
  8. GILENYA [Suspect]
     Indication: MULTIPLE SCLEROSIS
     Dosage: 0.5 MG, QD
     Route: 048
     Dates: start: 20110929
  9. MS CONTIN [Concomitant]
     Dosage: 1 DF, BID
     Route: 048
  10. DETROL [Concomitant]
     Indication: URINARY INCONTINENCE
     Dosage: 1 DF, QD
     Route: 048
  11. RECLAST [Concomitant]
     Dosage: UNK UKN, UNK
     Route: 042
  12. NUVIGIL [Concomitant]
     Indication: SOMNOLENCE
     Dosage: 150 MG, QD
     Route: 048
  13. VITAMIN D [Concomitant]
     Dosage: UNK UKN, UNK
     Route: 048
  14. PERCOCET [Concomitant]
     Dosage: UNK UKN, UNK
     Route: 048
  15. CALTRATE 600 + VITAMIN D [Concomitant]
     Dosage: 1 DF, BID
     Route: 048
  16. SONATA [Concomitant]
     Dosage: 1 DF, QD
     Route: 048

REACTIONS (1)
  - DEATH [None]
